FAERS Safety Report 20796505 (Version 1)
Quarter: 2022Q2

REPORT INFORMATION
  Report Type: Spontaneous
  Country: US (occurrence: US)
  Receive Date: 20220506
  Receipt Date: 20220506
  Transmission Date: 20220721
  Serious: Yes (Other)
  Sender: FDA-Public Use
  Company Number: US-PERRIGO-22US006471

PATIENT
  Age: 17 Year

DRUGS (1)
  1. LOPERAMIDE HYDROCHLORIDE [Suspect]
     Active Substance: LOPERAMIDE HYDROCHLORIDE
     Indication: Drug abuse
     Dosage: UNK
     Route: 048

REACTIONS (2)
  - Electrocardiogram QT prolonged [Unknown]
  - Toxicity to various agents [Unknown]
